FAERS Safety Report 12220452 (Version 1)
Quarter: 2016Q1

REPORT INFORMATION
  Report Type: Spontaneous
  Country: US (occurrence: US)
  Receive Date: 20160330
  Receipt Date: 20160330
  Transmission Date: 20160526
  Serious: No
  Sender: FDA-Public Use
  Company Number: US-ASTRAZENECA-2016SE31223

PATIENT
  Age: 26945 Day
  Sex: Female
  Weight: 94.8 kg

DRUGS (2)
  1. SYMBICORT [Suspect]
     Active Substance: BUDESONIDE\FORMOTEROL FUMARATE DIHYDRATE
     Indication: ASTHMA
     Dosage: 160/4.5 MCG, 2 PUFFS TWICE PER DAY
     Route: 055
     Dates: start: 201603
  2. SYMBICORT [Suspect]
     Active Substance: BUDESONIDE\FORMOTEROL FUMARATE DIHYDRATE
     Indication: WHEEZING
     Dosage: 160/4.5 MCG, 2 PUFFS TWICE PER DAY
     Route: 055
     Dates: start: 201603

REACTIONS (2)
  - Ageusia [Unknown]
  - Hyposmia [Unknown]

NARRATIVE: CASE EVENT DATE: 20160316
